FAERS Safety Report 8169644-8 (Version None)
Quarter: 2012Q1

REPORT INFORMATION
  Report Type: 
  Country: None (occurrence: None)
  Receive Date: 20120228
  Receipt Date: 20120222
  Transmission Date: 20120608
  Serious: Yes (Other)
  Sender: FDA-Public Use
  Company Number: US-PFIZER INC-2012047380

PATIENT
  Sex: Female
  Weight: 68.03 kg

DRUGS (2)
  1. FUROSEMIDE [Concomitant]
     Dosage: UNK
  2. LYRICA [Suspect]
     Indication: PAIN
     Dosage: 50 MG, 1X/DAY
     Route: 048
     Dates: start: 20120118, end: 20120121

REACTIONS (5)
  - OEDEMA MOUTH [None]
  - SWOLLEN TONGUE [None]
  - OEDEMA PERIPHERAL [None]
  - SWELLING FACE [None]
  - JOINT SWELLING [None]
